FAERS Safety Report 5986959-X (Version None)
Quarter: 2008Q4

REPORT INFORMATION
  Report Type: 
  Country: None (occurrence: None)
  Receive Date: 20081209
  Receipt Date: 20080410
  Transmission Date: 20090506
  Serious: No
  Sender: FDA-Public Use
  Company Number: US-AMGEN-KDL273952

PATIENT
  Sex: Male

DRUGS (2)
  1. ENBREL [Suspect]
     Indication: RHEUMATOID ARTHRITIS
     Route: 058
     Dates: start: 20080310
  2. METHOTREXATE [Concomitant]
     Dates: start: 19990101

REACTIONS (4)
  - DRY EYE [None]
  - EYE IRRITATION [None]
  - HEADACHE [None]
  - VISION BLURRED [None]
